FAERS Safety Report 7427077-3 (Version None)
Quarter: 2011Q2

REPORT INFORMATION
  Report Type: 
  Country: None (occurrence: None)
  Receive Date: 20110420
  Receipt Date: 20110412
  Transmission Date: 20111010
  Serious: Yes (Hospitalization, Other)
  Sender: FDA-Public Use
  Company Number: PHHY2010US66462

PATIENT
  Sex: Female

DRUGS (9)
  1. PULMOZYME [Concomitant]
     Indication: CYSTIC FIBROSIS
  2. MINOCYCLINE [Concomitant]
     Dosage: 100 MG, BID
  3. HYZAAR [Concomitant]
     Indication: HYPERTENSION
  4. ZOCOR [Concomitant]
  5. BACTRIM [Suspect]
     Dosage: UNK
     Dates: start: 20110210, end: 20110221
  6. LACTULOSE [Concomitant]
     Indication: CONSTIPATION
  7. TOBI [Suspect]
     Indication: CYSTIC FIBROSIS
     Dosage: 300 MG, BID
  8. BACTRIM [Suspect]
     Indication: COUGH
     Dosage: UNK
     Dates: start: 20101120
  9. AZITHROMYCIN [Concomitant]
     Dosage: 3 TIMES A WEEK
     Route: 048

REACTIONS (12)
  - DRUG HYPERSENSITIVITY [None]
  - LUNG INFECTION [None]
  - PRODUCTIVE COUGH [None]
  - DECREASED APPETITE [None]
  - MUSCULAR WEAKNESS [None]
  - NAUSEA [None]
  - DIZZINESS [None]
  - ANXIETY [None]
  - INSOMNIA [None]
  - SPUTUM DISCOLOURED [None]
  - WEIGHT DECREASED [None]
  - PSEUDOMONAS INFECTION [None]
